FAERS Safety Report 4601304-X (Version None)
Quarter: 2005Q1

REPORT INFORMATION
  Report Type: 
  Country: None (occurrence: None)
  Receive Date: 20050204
  Receipt Date: 20050126
  Transmission Date: 20050727
  Serious: Yes (Hospitalization)
  Sender: FDA-Public Use
  Company Number: 2005UW01414

PATIENT
  Age: 74 Year
  Sex: Male

DRUGS (2)
  1. CRESTOR [Suspect]
     Indication: BLOOD CHOLESTEROL INCREASED
     Dosage: 10 MG PO
     Route: 048
  2. ASPIRIN [Concomitant]

REACTIONS (3)
  - LOBAR PNEUMONIA [None]
  - RHABDOMYOLYSIS [None]
  - VIRAL INFECTION [None]
